FAERS Safety Report 19581684 (Version 1)
Quarter: 2021Q3

REPORT INFORMATION
  Report Type: Spontaneous
  Country: US (occurrence: US)
  Receive Date: 20210719
  Receipt Date: 20210719
  Transmission Date: 20211014
  Serious: Yes (Death)
  Sender: FDA-Public Use
  Company Number: None

PATIENT
  Age: 59 Year
  Sex: Female

DRUGS (1)
  1. FONDAPARINUX PFS 10MG/0.8ML [Suspect]
     Active Substance: FONDAPARINUX
     Indication: PULMONARY EMBOLISM
     Route: 058
     Dates: start: 2020, end: 20210621

REACTIONS (1)
  - Death [None]

NARRATIVE: CASE EVENT DATE: 20210719
